FAERS Safety Report 23421622 (Version 1)
Quarter: 2024Q1

REPORT INFORMATION
  Report Type: Spontaneous
  Country: AU (occurrence: AU)
  Receive Date: 20240119
  Receipt Date: 20240119
  Transmission Date: 20240410
  Serious: Yes (Other)
  Sender: FDA-Public Use
  Company Number: AU-EPICPHARMA-AU-2024EPCLIT00055

PATIENT
  Age: 36 Year
  Sex: Male

DRUGS (4)
  1. MOXIFLOXACIN HYDROCHLORIDE [Suspect]
     Active Substance: MOXIFLOXACIN HYDROCHLORIDE\MOXIFLOXACIN HYDROCHLORIDE MONOHYDRATE
     Indication: Latent tuberculosis
     Route: 065
  2. ISONIAZID [Suspect]
     Active Substance: ISONIAZID
     Indication: Latent tuberculosis
     Route: 065
  3. RIFAMPIN [Suspect]
     Active Substance: RIFAMPIN
     Indication: Latent tuberculosis
     Route: 065
  4. PYRIDOXINE [Suspect]
     Active Substance: PYRIDOXINE
     Indication: Latent tuberculosis
     Route: 065

REACTIONS (2)
  - Choroiditis [Recovered/Resolved]
  - Condition aggravated [Recovered/Resolved]
